FAERS Safety Report 6244465-1 (Version None)
Quarter: 2009Q2

REPORT INFORMATION
  Report Type: 
  Country: None (occurrence: None)
  Receive Date: 20090625
  Receipt Date: 20090427
  Transmission Date: 20091009
  Serious: Yes (Hospitalization)
  Sender: FDA-Public Use
  Company Number: TR-ELI_LILLY_AND_COMPANY-TR200906003333

PATIENT
  Age: 81 Year
  Sex: Female

DRUGS (6)
  1. FORTEO [Suspect]
     Indication: OSTEOPOROSIS
     Dosage: UNK, DAILY (1/D)
     Route: 058
     Dates: start: 20090325
  2. FORTEO [Suspect]
     Dosage: UNK, DAILY (1/D)
     Route: 058
     Dates: end: 20090424
  3. ARAVA [Concomitant]
     Indication: MUSCULOSKELETAL PAIN
     Dosage: UNK, DAILY (1/D)
     Route: 048
  4. CALCIUM [Concomitant]
     Indication: MUSCULOSKELETAL PAIN
     Dosage: UNK, DAILY (1/D)
     Route: 048
  5. DILTIAZEM [Concomitant]
     Dosage: UNK, 2/D
     Route: 048
     Dates: start: 20090101
  6. AMOKLAVIN-BID [Concomitant]
     Indication: GASTRIC DISORDER
     Dosage: UNK, DAILY (1/D)
     Route: 048

REACTIONS (3)
  - BACK PAIN [None]
  - GASTROINTESTINAL HAEMORRHAGE [None]
  - NAUSEA [None]
